FAERS Safety Report 24036113 (Version 2)
Quarter: 2024Q3

REPORT INFORMATION
  Report Type: Spontaneous
  Country: US (occurrence: US)
  Receive Date: 20240701
  Receipt Date: 20240821
  Transmission Date: 20241016
  Serious: Yes (Other)
  Sender: CHIESI
  Company Number: US-CHIESI-2024CHF03832

PATIENT
  Age: 15 Year
  Sex: Female

DRUGS (1)
  1. LAMZEDE [Suspect]
     Active Substance: VELMANASE ALFA-TYCV
     Indication: Product used for unknown indication
     Dosage: UNK, QW
     Route: 042

REACTIONS (5)
  - Foot fracture [Unknown]
  - Bone loss [Unknown]
  - Bone density abnormal [Unknown]
  - Gastroenteritis viral [Recovered/Resolved]
  - Toothache [Unknown]
